FAERS Safety Report 10797567 (Version 2)
Quarter: 2015Q1

REPORT INFORMATION
  Report Type: Spontaneous
  Country: FR (occurrence: FR)
  Receive Date: 20150216
  Receipt Date: 20150218
  Transmission Date: 20150721
  Serious: Yes (Hospitalization)
  Sender: FDA-Public Use
  Company Number: FR-ASTRAZENECA-2015SE13410

PATIENT
  Age: 13930 Day
  Sex: Male
  Weight: 82 kg

DRUGS (4)
  1. XYLOCAINE NAPHAZOLINE [Suspect]
     Active Substance: LIDOCAINE HYDROCHLORIDE\NAPHAZOLINE NITRATE
     Route: 042
     Dates: start: 20150103, end: 20150104
  2. OROZAMUDOL [Concomitant]
     Active Substance: TRAMADOL
  3. DEBRIDAT [Concomitant]
     Active Substance: TRIMEBUTINE MALEATE
  4. PRINCI B [Concomitant]
     Active Substance: PYRIDOXINE\THIAMINE

REACTIONS (2)
  - Dysarthria [Recovered/Resolved]
  - Drug administration error [Unknown]

NARRATIVE: CASE EVENT DATE: 20150103
